FAERS Safety Report 23758711 (Version 1)
Quarter: 2024Q2

REPORT INFORMATION
  Report Type: Spontaneous
  Country: US (occurrence: None)
  Receive Date: 20240418
  Receipt Date: 20240418
  Transmission Date: 20240716
  Serious: No
  Sender: FDA-Public Use
  Company Number: US-ROCHE-3463593

PATIENT
  Age: 63 Year
  Sex: Male
  Weight: 71.823 kg

DRUGS (20)
  1. AVASTIN [Suspect]
     Active Substance: BEVACIZUMAB
     Indication: Metastatic renal cell carcinoma
     Route: 065
     Dates: start: 20141208, end: 20160711
  2. ALBUTEROL SULFATE [Concomitant]
     Active Substance: ALBUTEROL SULFATE
     Dosage: 90 MCG/ACTUATION AEROSOL INHALER
  3. AMBIEN [Concomitant]
     Active Substance: ZOLPIDEM TARTRATE
  4. FLUDROCORTISONE [Concomitant]
     Active Substance: FLUDROCORTISONE
  5. HYDROCORTISONE [Concomitant]
     Active Substance: HYDROCORTISONE
  6. LEVOTHYROXINE [Concomitant]
     Active Substance: LEVOTHYROXINE\LEVOTHYROXINE SODIUM
  7. LOMOTIL [Concomitant]
     Active Substance: ATROPINE SULFATE\DIPHENOXYLATE HYDROCHLORIDE
     Dosage: 2.5 MG-0.025 MG
  8. LOPERAMIDE [Concomitant]
     Active Substance: LOPERAMIDE
  9. NUVIGIL [Concomitant]
     Active Substance: ARMODAFINIL
  10. ROSUVASTATIN [Concomitant]
     Active Substance: ROSUVASTATIN
  11. VELTASSA [Concomitant]
     Active Substance: PATIROMER
  12. VIIBRYD [Concomitant]
     Active Substance: VILAZODONE HYDROCHLORIDE
  13. WELLBUTRIN XL [Concomitant]
     Active Substance: BUPROPION HYDROCHLORIDE
     Dosage: 24 HOUR TABLET EXTENDED RELEASE
  14. XGEVA [Concomitant]
     Active Substance: DENOSUMAB
     Dates: start: 20150427
  15. OPDIVO [Concomitant]
     Active Substance: NIVOLUMAB
     Dates: start: 20180321
  16. CABOMETYX [Concomitant]
     Active Substance: CABOZANTINIB S-MALATE
     Dates: start: 20181021
  17. CABOMETYX [Concomitant]
     Active Substance: CABOZANTINIB S-MALATE
     Dates: start: 201904
  18. CABOMETYX [Concomitant]
     Active Substance: CABOZANTINIB S-MALATE
     Dates: start: 201905
  19. CABOMETYX [Concomitant]
     Active Substance: CABOZANTINIB S-MALATE
     Dates: start: 202103, end: 202105
  20. VOTRIENT [Concomitant]
     Active Substance: PAZOPANIB HYDROCHLORIDE
     Dates: start: 202107, end: 20230121

REACTIONS (7)
  - Hypertension [Unknown]
  - Proteinuria [Unknown]
  - Disease progression [Unknown]
  - Stomatitis [Unknown]
  - Cervical radiculopathy [Unknown]
  - Hypocalcaemia [Unknown]
  - Diarrhoea [Recovered/Resolved]
